FAERS Safety Report 9830164 (Version 1)
Quarter: 2014Q1

REPORT INFORMATION
  Report Type: Spontaneous
  Country: US (occurrence: US)
  Receive Date: 20140120
  Receipt Date: 20140120
  Transmission Date: 20141002
  Serious: Yes (Hospitalization)
  Sender: FDA-Public Use
  Company Number: US-DRREDDYS-USA/USA/14/0037167

PATIENT
  Sex: Female

DRUGS (1)
  1. FAMOTIDINE [Suspect]
     Indication: PRODUCT USED FOR UNKNOWN INDICATION
     Route: 048

REACTIONS (3)
  - Atrial fibrillation [Unknown]
  - Atrial flutter [Unknown]
  - Cerebrovascular accident [Unknown]
